FAERS Safety Report 4557925-6 (Version None)
Quarter: 2005Q1

REPORT INFORMATION
  Report Type: 
  Country: None (occurrence: None)
  Receive Date: 20050121
  Receipt Date: 20040130
  Transmission Date: 20050727
  Serious: No
  Sender: FDA-Public Use
  Company Number: US-BRISTOL-MYERS SQUIBB COMPANY-12495628

PATIENT
  Sex: Male

DRUGS (5)
  1. SERZONE [Suspect]
     Dosage: UP TO 250 MG TWICE DAILY IN 2001
     Route: 048
  2. LOTREL [Concomitant]
  3. LOTENSIN [Concomitant]
  4. SEPTRA [Concomitant]
  5. GLUCOPHAGE [Concomitant]

REACTIONS (2)
  - LIVER FUNCTION TEST ABNORMAL [None]
  - WEIGHT DECREASED [None]
